FAERS Safety Report 10377530 (Version 2)
Quarter: 2014Q3

REPORT INFORMATION
  Report Type: Report from Study
  Country: JP (occurrence: JP)
  Receive Date: 20140812
  Receipt Date: 20140921
  Transmission Date: 20150326
  Serious: Yes (Hospitalization, Other)
  Sender: FDA-Public Use
  Company Number: PHHY2014JP096923

PATIENT
  Age: 72 Year
  Sex: Female
  Weight: 47 kg

DRUGS (11)
  1. FP [Concomitant]
     Active Substance: SELEGILINE HYDROCHLORIDE
     Indication: PARKINSON^S DISEASE
     Dosage: 2.5 MG, UNK
     Route: 048
     Dates: start: 20070201
  2. MAGMITT [Concomitant]
     Active Substance: MAGNESIUM OXIDE
     Dosage: 1000 MG, UNK
     Route: 048
     Dates: start: 20081121
  3. DIOVAN [Concomitant]
     Active Substance: VALSARTAN
     Dosage: 40 MG, UNK
     Route: 048
     Dates: start: 20081121
  4. MEVALOTIN [Concomitant]
     Active Substance: PRAVASTATIN SODIUM
     Dosage: 10 MG, UNK
     Route: 048
     Dates: start: 20081121
  5. DEPAS [Concomitant]
     Active Substance: ETIZOLAM
     Dosage: 0.5 MG, UNK
     Route: 048
     Dates: start: 20081121
  6. LEVODOPA/CARBIDOPA [Concomitant]
     Active Substance: CARBIDOPA\LEVODOPA
     Indication: PARKINSON^S DISEASE
     Dosage: 400 MG, UNK
     Route: 048
     Dates: start: 20070201
  7. MUCOSTA [Concomitant]
     Active Substance: REBAMIPIDE
     Dosage: 300 MG, UNK
     Route: 048
     Dates: start: 20081121
  8. ENTACAPONE. [Suspect]
     Active Substance: ENTACAPONE
     Indication: PARKINSON^S DISEASE
     Dosage: 300 MG, DAILY
     Route: 048
     Dates: end: 20090306
  9. DOPS [Concomitant]
     Active Substance: DROXIDOPA
     Indication: PARKINSON^S DISEASE
     Dosage: 300 MG, UNK
     Route: 048
     Dates: start: 20070201
  10. REQUIP [Concomitant]
     Active Substance: ROPINIROLE HYDROCHLORIDE
     Indication: PARKINSON^S DISEASE
     Dosage: 1.5 MG, UNK
     Route: 048
     Dates: start: 20070201
  11. GASMOTIN [Concomitant]
     Active Substance: MOSAPRIDE CITRATE
     Dosage: 15 MG, UNK
     Route: 048
     Dates: start: 20081121

REACTIONS (5)
  - Glycosylated haemoglobin increased [Unknown]
  - Fall [Recovered/Resolved]
  - Humerus fracture [Recovered/Resolved]
  - Alanine aminotransferase increased [Unknown]
  - Blood glucose increased [Unknown]

NARRATIVE: CASE EVENT DATE: 20081203
